FAERS Safety Report 18480454 (Version 2)
Quarter: 2021Q1

REPORT INFORMATION
  Report Type: Report from Study
  Country: BR (occurrence: BR)
  Receive Date: 20201109
  Receipt Date: 20210325
  Transmission Date: 20210419
  Serious: Yes (Other)
  Sender: FDA-Public Use
  Company Number: PHHY2018BR191221

PATIENT
  Age: 64 Year
  Sex: Female
  Weight: 56 kg

DRUGS (8)
  1. OSTEOTEC [Concomitant]
     Indication: PRODUCT USED FOR UNKNOWN INDICATION
     Dosage: UNK, QMO
     Route: 065
     Dates: start: 202009
  2. COSENTYX [Suspect]
     Active Substance: SECUKINUMAB
     Dosage: 300 MG, UNKNOWN
     Route: 065
     Dates: start: 20180103, end: 20191117
  3. COSENTYX [Suspect]
     Active Substance: SECUKINUMAB
     Dosage: 2 DF, QMO
     Route: 058
  4. COSENTYX [Suspect]
     Active Substance: SECUKINUMAB
     Indication: PSORIATIC ARTHROPATHY
     Dosage: 300 MG, QW
     Route: 058
     Dates: start: 20171206
  5. COSENTYX [Suspect]
     Active Substance: SECUKINUMAB
     Dosage: UNK
     Route: 058
     Dates: start: 20181213
  6. DEFLAZACORT [Concomitant]
     Active Substance: DEFLAZACORT
     Indication: PAIN
     Dosage: 1 DF, QD
     Route: 065
  7. COSENTYX [Suspect]
     Active Substance: SECUKINUMAB
     Dosage: UNK
     Route: 065
     Dates: start: 20201018
  8. COSENTYX [Suspect]
     Active Substance: SECUKINUMAB
     Dosage: UNK
     Route: 065
     Dates: start: 20210222

REACTIONS (27)
  - Osteoporosis [Not Recovered/Not Resolved]
  - Osteoarthritis [Not Recovered/Not Resolved]
  - Fear [Unknown]
  - Gait disturbance [Not Recovered/Not Resolved]
  - Malaise [Unknown]
  - Arthralgia [Recovering/Resolving]
  - Cardiovascular somatic symptom disorder [Not Recovered/Not Resolved]
  - Pain [Recovering/Resolving]
  - Product dose omission issue [Unknown]
  - Sciatica [Not Recovered/Not Resolved]
  - Body height decreased [Not Recovered/Not Resolved]
  - Scab [Unknown]
  - Restless legs syndrome [Not Recovered/Not Resolved]
  - Confusional state [Unknown]
  - Pain in extremity [Not Recovered/Not Resolved]
  - Wound [Recovering/Resolving]
  - Insomnia [Recovering/Resolving]
  - Dermatoglyphic anomaly [Not Recovered/Not Resolved]
  - Psoriasis [Not Recovered/Not Resolved]
  - Osteopenia [Not Recovered/Not Resolved]
  - Weight decreased [Not Recovered/Not Resolved]
  - Skin exfoliation [Recovering/Resolving]
  - Nervousness [Unknown]
  - Psoriatic arthropathy [Unknown]
  - Hypophagia [Unknown]
  - Limb injury [Recovering/Resolving]
  - Agitation [Unknown]

NARRATIVE: CASE EVENT DATE: 20191119
